FAERS Safety Report 15331127 (Version 2)
Quarter: 2018Q4

REPORT INFORMATION
  Report Type: Report from Study
  Country: US (occurrence: US)
  Receive Date: 20180829
  Receipt Date: 20181018
  Transmission Date: 20190204
  Serious: Yes (Death)
  Sender: FDA-Public Use
  Company Number: US-TAKEDA-2018TUS025529

PATIENT
  Age: 65 Year
  Sex: Male

DRUGS (1)
  1. BRIGATINIB [Suspect]
     Active Substance: BRIGATINIB
     Indication: NEOPLASM MALIGNANT
     Dosage: 90 MG, UNK
     Route: 048

REACTIONS (2)
  - Vision blurred [Unknown]
  - Death [Fatal]

NARRATIVE: CASE EVENT DATE: 20180820
